FAERS Safety Report 24069837 (Version 1)
Quarter: 2024Q3

REPORT INFORMATION
  Report Type: Report from Study
  Country: IL (occurrence: IL)
  Receive Date: 20240710
  Receipt Date: 20240710
  Transmission Date: 20241017
  Serious: No
  Sender: ROCHE
  Company Number: IL-ROCHE-3456355

PATIENT
  Sex: Male

DRUGS (1)
  1. ALECENSA [Suspect]
     Active Substance: ALECTINIB HYDROCHLORIDE
     Indication: Non-small cell lung cancer
     Dosage: MORE DOSAGE INFORMATION IS 600MG BID
     Route: 048
     Dates: start: 20230707

REACTIONS (2)
  - Product dose omission issue [Unknown]
  - No adverse event [Unknown]
